FAERS Safety Report 17804485 (Version 6)
Quarter: 2020Q4

REPORT INFORMATION
  Report Type: Spontaneous
  Country: JP (occurrence: JP)
  Receive Date: 20200519
  Receipt Date: 20201204
  Transmission Date: 20210113
  Serious: Yes (Death, Other)
  Sender: FDA-Public Use
  Company Number: JP-009507513-2005JPN000889J

PATIENT
  Age: 61 Year
  Sex: Male
  Weight: 82 kg

DRUGS (8)
  1. AMBISOME [Concomitant]
     Active Substance: AMPHOTERICIN B
     Indication: FUNGAL INFECTION
     Dosage: UNK
     Route: 041
  2. NOXAFIL [Suspect]
     Active Substance: POSACONAZOLE
     Dosage: 300 MILLIGRAM, QD
     Route: 048
     Dates: start: 202005, end: 20200513
  3. AMBISOME [Concomitant]
     Active Substance: AMPHOTERICIN B
     Dosage: UNK
     Route: 041
     Dates: start: 202005
  4. VFEND [Concomitant]
     Active Substance: VORICONAZOLE
     Indication: FUNGAL INFECTION
     Dosage: UNK
     Route: 065
  5. NOXAFIL [Suspect]
     Active Substance: POSACONAZOLE
     Indication: PULMONARY MUCORMYCOSIS
     Dosage: 300 MILLIGRAM, BID
     Route: 048
     Dates: start: 20200508, end: 202005
  6. PREDONINE [Concomitant]
     Active Substance: PREDNISOLONE
     Indication: ACUTE GRAFT VERSUS HOST DISEASE IN SKIN
     Dosage: 10 MILLIGRAM, QD
     Route: 048
     Dates: start: 20200508, end: 20200515
  7. TAKECAB [Concomitant]
     Active Substance: VONOPRAZAN FUMARATE
     Indication: PROPHYLAXIS AGAINST GASTROINTESTINAL ULCER
     Dosage: 20 MILLIGRAM, QD
     Route: 048
     Dates: start: 20190117, end: 20200522
  8. VICCLOX [Concomitant]
     Active Substance: ACYCLOVIR SODIUM
     Indication: PROPHYLAXIS
     Dosage: 250 MILLIGRAM, BID
     Route: 041
     Dates: start: 20200508, end: 20200524

REACTIONS (7)
  - Enteritis [Not Recovered/Not Resolved]
  - Pulmonary mucormycosis [Fatal]
  - Lipase increased [Recovered/Resolved]
  - Small intestinal haemorrhage [Not Recovered/Not Resolved]
  - Liver disorder [Not Recovered/Not Resolved]
  - Hepatomegaly [Not Recovered/Not Resolved]
  - Cholestasis [Not Recovered/Not Resolved]

NARRATIVE: CASE EVENT DATE: 20200509
